FAERS Safety Report 5394216-8 (Version None)
Quarter: 2007Q3

REPORT INFORMATION
  Report Type: 
  Country: None (occurrence: None)
  Receive Date: 20070723
  Receipt Date: 20070418
  Transmission Date: 20080115
  Serious: No
  Sender: FDA-Public Use
  Company Number: A0648078A

PATIENT
  Age: 63 Year
  Sex: Female

DRUGS (11)
  1. AVANDIA [Suspect]
  2. BYETTA [Suspect]
     Route: 058
  3. MOBIC [Suspect]
  4. GLUCOPHAGE [Suspect]
  5. SYNTHROID [Concomitant]
  6. KLOR-CON [Concomitant]
  7. FUROSEMIDE [Concomitant]
  8. VITAMIN B-12 [Concomitant]
  9. VITAMIN D [Concomitant]
  10. CALCIUM CHLORIDE [Concomitant]
  11. MAXZIDE [Concomitant]

REACTIONS (1)
  - FLUID RETENTION [None]
